FAERS Safety Report 8181174-6 (Version None)
Quarter: 2012Q1

REPORT INFORMATION
  Report Type: 
  Country: None (occurrence: None)
  Receive Date: 20120302
  Receipt Date: 20120221
  Transmission Date: 20120608
  Serious: Yes (Other)
  Sender: FDA-Public Use
  Company Number: US-GLAXOSMITHKLINE-A0967909A

PATIENT
  Age: 60 Year
  Sex: Male

DRUGS (2)
  1. NONE [Concomitant]
  2. PAXIL CR [Suspect]
     Indication: ANXIETY
     Dosage: 150MG PER DAY
     Route: 048
     Dates: start: 20000101, end: 20120201

REACTIONS (1)
  - CARDIAC FAILURE CONGESTIVE [None]
